FAERS Safety Report 15882364 (Version 2)
Quarter: 2019Q2

REPORT INFORMATION
  Report Type: Spontaneous
  Country: US (occurrence: US)
  Receive Date: 20190129
  Receipt Date: 20190423
  Transmission Date: 20190711
  Serious: No
  Sender: FDA-Public Use
  Company Number: US-SHIRE-US201902551

PATIENT
  Age: 38 Year
  Sex: Female

DRUGS (3)
  1. TAKHZYRO [Suspect]
     Active Substance: LANADELUMAB-FLYO
     Indication: HEREDITARY ANGIOEDEMA
     Route: 065
  2. BENADRYL [Concomitant]
     Active Substance: DIPHENHYDRAMINE HYDROCHLORIDE
     Indication: PRODUCT USED FOR UNKNOWN INDICATION
  3. KALBITOR [Suspect]
     Active Substance: ECALLANTIDE
     Indication: HEREDITARY ANGIOEDEMA
     Dosage: 30 MILLIGRAM, INJECTION
     Route: 050

REACTIONS (7)
  - Condition aggravated [Unknown]
  - Erythema [Unknown]
  - Asthma [Unknown]
  - Drug ineffective [Unknown]
  - Flushing [Unknown]
  - Dyspnoea [Unknown]
  - Hereditary angioedema [Unknown]

NARRATIVE: CASE EVENT DATE: 20190120
